FAERS Safety Report 7878882-0 (Version None)
Quarter: 2011Q4

REPORT INFORMATION
  Report Type: 
  Country: None (occurrence: None)
  Receive Date: 20111021
  Receipt Date: 20110408
  Transmission Date: 20120403
  Serious: Yes (Other)
  Sender: FDA-Public Use
  Company Number: 2011SP016035

PATIENT
  Age: 57 Year
  Sex: Male

DRUGS (1)
  1. TEMODAR [Suspect]
     Indication: PRODUCT USED FOR UNKNOWN INDICATION
     Dosage: 150 MG;QD;PO
     Route: 048
     Dates: start: 20101201

REACTIONS (1)
  - PANCYTOPENIA [None]
